FAERS Safety Report 10256431 (Version 1)
Quarter: 2014Q2

REPORT INFORMATION
  Report Type: Spontaneous
  Country: US (occurrence: US)
  Receive Date: 20140624
  Receipt Date: 20140624
  Transmission Date: 20141212
  Serious: No
  Sender: FDA-Public Use
  Company Number: US-ZOGENIX, INC.-2012ZX000179

PATIENT
  Age: 44 Year
  Sex: Male
  Weight: 74.91 kg

DRUGS (4)
  1. SUMAVEL DOSEPRO [Suspect]
     Indication: MIGRAINE
     Dates: start: 20120512, end: 20120512
  2. DEPAKOTE [Concomitant]
     Indication: CONVULSION
  3. SIMVASTATIN [Concomitant]
     Indication: BLOOD CHOLESTEROL
  4. NIASPAN [Concomitant]
     Indication: BLOOD CHOLESTEROL

REACTIONS (5)
  - Eye pain [Recovering/Resolving]
  - Ocular hyperaemia [Recovered/Resolved]
  - Eye swelling [Recovered/Resolved]
  - Device malfunction [Recovered/Resolved]
  - Accidental exposure to product [Recovered/Resolved]
